FAERS Safety Report 26055689 (Version 2)
Quarter: 2025Q4

REPORT INFORMATION
  Report Type: Report from Study
  Country: GB (occurrence: GB)
  Receive Date: 20251117
  Receipt Date: 20251119
  Transmission Date: 20260118
  Serious: Yes (Other)
  Sender: ABBVIE
  Company Number: GB-ABBVIE-6548624

PATIENT
  Age: 32 Year
  Sex: Male

DRUGS (1)
  1. SKYRIZI [Suspect]
     Active Substance: RISANKIZUMAB-RZAA
     Indication: Crohn^s disease
     Dosage: FORM STRENGTH: 360MG/2.4ML?DOSE FORM: SOLUTION FOR INJECTION CARTRIDGE
     Route: 058
     Dates: start: 20241108

REACTIONS (3)
  - Intestinal resection [Unknown]
  - Crohn^s disease [Unknown]
  - Stoma creation [Unknown]

NARRATIVE: CASE EVENT DATE: 20250912
